FAERS Safety Report 8673997 (Version 2)
Quarter: 2012Q4

REPORT INFORMATION
  Report Type: 
  Country: US (occurrence: US)
  Receive Date: 20120719
  Receipt Date: 20120927
  Transmission Date: 20130627
  Serious: Yes (Other)
  Sender: FDA-Public Use
  Company Number: US-BAXTER-2012BAX010914

PATIENT
  Age: 75 Year
  Sex: Male

DRUGS (1)
  1. TISSEEL [Suspect]
     Indication: DRUG USE FOR UNKNOWN INDICATION
     Route: 061
     Dates: start: 20120706

REACTIONS (1)
  - Seroma [Unknown]
